FAERS Safety Report 25483989 (Version 1)
Quarter: 2025Q2

REPORT INFORMATION
  Report Type: Spontaneous
  Country: CA (occurrence: CA)
  Receive Date: 20250626
  Receipt Date: 20250626
  Transmission Date: 20250716
  Serious: Yes (Life-Threatening, Hospitalization, Other)
  Sender: PFIZER
  Company Number: CA-PFIZER INC-202500129058

PATIENT
  Age: 2 Year
  Sex: Male
  Weight: 11 kg

DRUGS (2)
  1. RITUXIMAB [Suspect]
     Active Substance: RITUXIMAB
     Indication: Immunosuppressant drug therapy
  2. TACROLIMUS [Suspect]
     Active Substance: TACROLIMUS
     Indication: Immunosuppressant drug therapy

REACTIONS (3)
  - Febrile neutropenia [Recovered/Resolved]
  - Off label use [Unknown]
  - Off label use [Unknown]
